FAERS Safety Report 9250725 (Version 1)
Quarter: 2013Q2

REPORT INFORMATION
  Report Type: Report from Study
  Country: MX (occurrence: MX)
  Receive Date: 20130424
  Receipt Date: 20130424
  Transmission Date: 20140414
  Serious: Yes (Hospitalization)
  Sender: FDA-Public Use
  Company Number: MX-SANOFI-AVENTIS-2013SA041239

PATIENT
  Age: 58 Year
  Sex: Female
  Weight: 105 kg

DRUGS (3)
  1. LANTUS [Suspect]
     Indication: TYPE 2 DIABETES MELLITUS
     Route: 058
     Dates: start: 201212, end: 201303
  2. AMARYL M [Suspect]
     Indication: TYPE 2 DIABETES MELLITUS
     Route: 048
     Dates: start: 201212, end: 201303
  3. BI-EUGLUCON [Concomitant]
     Indication: TYPE 2 DIABETES MELLITUS
     Route: 048
     Dates: start: 201212

REACTIONS (3)
  - Kidney infection [Recovered/Resolved]
  - Hyperglycaemia [Recovered/Resolved]
  - Inappropriate schedule of drug administration [Unknown]
